FAERS Safety Report 22350817 (Version 1)
Quarter: 2023Q2

REPORT INFORMATION
  Report Type: Spontaneous
  Country: US (occurrence: None)
  Receive Date: 20230521
  Receipt Date: 20230521
  Transmission Date: 20230721
  Serious: Yes (Life-Threatening, Disabling)
  Sender: FDA-Public Use
  Company Number: None

PATIENT
  Age: 26 Year
  Sex: Male
  Weight: 117 kg

DRUGS (3)
  1. SPIRONOLACTONE [Suspect]
     Active Substance: SPIRONOLACTONE
     Indication: Blood testosterone increased
     Dosage: OTHER QUANTITY : 1 TABLET(S);?FREQUENCY : EVERY 8 HOURS;?
     Route: 048
     Dates: start: 20190704, end: 20230519
  2. SPIRONOLACTONE [Suspect]
     Active Substance: SPIRONOLACTONE
     Indication: Hormone replacement therapy
  3. ESTRADIOL [Concomitant]
     Active Substance: ESTRADIOL

REACTIONS (24)
  - Adrenal disorder [None]
  - Dermatitis [None]
  - Urinary tract infection [None]
  - Skin infection [None]
  - Oral infection [None]
  - Hyperlipidaemia [None]
  - Anxiety [None]
  - Depression [None]
  - Drug ineffective [None]
  - Brain fog [None]
  - Memory impairment [None]
  - Cognitive disorder [None]
  - Teeth brittle [None]
  - Jaw disorder [None]
  - Cellulitis [None]
  - Abnormal weight gain [None]
  - Abnormal loss of weight [None]
  - Mood swings [None]
  - Fatigue [None]
  - Sleep disorder [None]
  - Bone metabolism disorder [None]
  - Muscle disorder [None]
  - Muscular weakness [None]
  - Tooth loss [None]

NARRATIVE: CASE EVENT DATE: 20230228
